FAERS Safety Report 15988096 (Version 1)
Quarter: 2019Q1

REPORT INFORMATION
  Report Type: Spontaneous
  Country: ES (occurrence: ES)
  Receive Date: 20190220
  Receipt Date: 20190220
  Transmission Date: 20190418
  Serious: Yes (Hospitalization, Other)
  Sender: FDA-Public Use
  Company Number: ES-ACCORD-108620

PATIENT
  Age: 31 Year
  Sex: Female

DRUGS (4)
  1. SERTRALINE [Suspect]
     Active Substance: SERTRALINE HYDROCHLORIDE
     Indication: MIXED ANXIETY AND DEPRESSIVE DISORDER
  2. DIAZEPAM. [Interacting]
     Active Substance: DIAZEPAM
     Indication: MIXED ANXIETY AND DEPRESSIVE DISORDER
  3. TIZANIDINE. [Interacting]
     Active Substance: TIZANIDINE
     Indication: MUSCLE CONTRACTURE
     Dosage: 6 MG DAILY
     Dates: start: 201605
  4. TIZANIDINE. [Interacting]
     Active Substance: TIZANIDINE
     Indication: MUSCLE CONTRACTURE
     Dosage: 16 MG DAILY

REACTIONS (14)
  - Drug interaction [Unknown]
  - Tremor [Recovered/Resolved]
  - Nausea [Recovering/Resolving]
  - Hyperthermia [Recovering/Resolving]
  - Intentional product misuse [Unknown]
  - Sedation [Recovering/Resolving]
  - Agitation [Recovered/Resolved]
  - Tachypnoea [Recovering/Resolving]
  - Sinus tachycardia [Recovering/Resolving]
  - Vomiting [Recovering/Resolving]
  - Drug withdrawal syndrome [Recovering/Resolving]
  - Hypertension [Recovering/Resolving]
  - Temperature regulation disorder [Recovering/Resolving]
  - Heart rate increased [Recovered/Resolved]
